FAERS Safety Report 25575987 (Version 2)
Quarter: 2025Q3

REPORT INFORMATION
  Report Type: Spontaneous
  Country: EU (occurrence: EU)
  Receive Date: 20250718
  Receipt Date: 20250818
  Transmission Date: 20251021
  Serious: Yes (Other)
  Sender: GENMAB
  Company Number: EU-ABBVIE-6319214

PATIENT
  Age: 40 Year
  Sex: Male
  Weight: 75.5 kg

DRUGS (1)
  1. EPCORITAMAB [Suspect]
     Active Substance: EPCORITAMAB
     Indication: Diffuse large B-cell lymphoma
     Route: 058
     Dates: start: 20250530, end: 20250530

REACTIONS (3)
  - Disease progression [Unknown]
  - Neurotoxicity [Unknown]
  - Immune effector cell-associated neurotoxicity syndrome [Unknown]
